FAERS Safety Report 19633722 (Version 1)
Quarter: 2021Q3

REPORT INFORMATION
  Report Type: Spontaneous
  Country: US (occurrence: US)
  Receive Date: 20210729
  Receipt Date: 20210729
  Transmission Date: 20211014
  Serious: No
  Sender: FDA-Public Use
  Company Number: None

PATIENT
  Age: 68 Year
  Sex: Female
  Weight: 81 kg

DRUGS (6)
  1. VITAMIN C [Concomitant]
     Active Substance: ASCORBIC ACID
  2. TELMISARTAN. [Concomitant]
     Active Substance: TELMISARTAN
  3. MULTI?VITAMIN/MINERAL [Concomitant]
  4. ROSUVASTATIN CALCIUM (SUB FOR CRESTOR) 20 MG TAB `. [Suspect]
     Active Substance: ROSUVASTATIN CALCIUM
     Indication: CEREBROVASCULAR ACCIDENT PROPHYLAXIS
     Dosage: ?          QUANTITY:90 TABLET(S);?
     Route: 048
     Dates: start: 20210714, end: 20210724
  5. METOPROLOL. [Concomitant]
     Active Substance: METOPROLOL
  6. XARELTO [Concomitant]
     Active Substance: RIVAROXABAN

REACTIONS (18)
  - Pain in extremity [None]
  - Nightmare [None]
  - Feeling cold [None]
  - Alopecia [None]
  - Depressed level of consciousness [None]
  - Dizziness [None]
  - Burning sensation [None]
  - Sleep disorder [None]
  - Muscular weakness [None]
  - Muscle spasms [None]
  - Renal pain [None]
  - Headache [None]
  - Cardiac flutter [None]
  - Balance disorder [None]
  - Tinnitus [None]
  - Back pain [None]
  - Faeces pale [None]
  - Epistaxis [None]

NARRATIVE: CASE EVENT DATE: 20210723
